FAERS Safety Report 9966850 (Version 1)
Quarter: 2014Q1

REPORT INFORMATION
  Report Type: Report from Study
  Country: US (occurrence: US)
  Receive Date: 20140305
  Receipt Date: 20140305
  Transmission Date: 20141002
  Serious: No
  Sender: FDA-Public Use
  Company Number: US-ABBVIE-13P-163-1123255-00

PATIENT
  Age: 26 Year
  Sex: Female

DRUGS (7)
  1. HUMIRA [Suspect]
     Indication: COLITIS ULCERATIVE
     Dates: start: 20130423, end: 20130423
  2. HUMIRA [Suspect]
     Dates: start: 20130507, end: 20130507
  3. HUMIRA [Suspect]
  4. ASACOL HD [Concomitant]
     Indication: COLITIS ULCERATIVE
     Dosage: 2 TABLETS 3 TIMES DAILY
  5. LOMOTIL [Concomitant]
     Indication: DIARRHOEA
     Dosage: AS NEEDED
  6. NORCO [Concomitant]
     Indication: PAIN
     Dosage: 5/325 MG ONE WEEKLY
  7. PREDNISONE [Concomitant]
     Indication: COLITIS ULCERATIVE
     Dosage: FOR 1 WEEK

REACTIONS (2)
  - Injection site bruising [Not Recovered/Not Resolved]
  - Injection site pain [Recovered/Resolved]
